FAERS Safety Report 22239171 (Version 5)
Quarter: 2023Q2

REPORT INFORMATION
  Report Type: Report from Study
  Country: MX (occurrence: None)
  Receive Date: 20230421
  Receipt Date: 20230605
  Transmission Date: 20230721
  Serious: Yes (Death, Life-Threatening, Hospitalization, Other)
  Sender: FDA-Public Use
  Company Number: MX-ROCHE-3325420

PATIENT
  Age: 76 Year
  Sex: Female
  Weight: 63 kg

DRUGS (22)
  1. MOSUNETUZUMAB [Suspect]
     Active Substance: MOSUNETUZUMAB
     Indication: B-cell lymphoma
     Dosage: ON 28-MAR-2023, THE PATIENT WAS RECEIVED MOST RECENT DOSE OF MOSUNETUZUMAB AT 45 MG PRIOR TO AE/SAE
     Route: 058
     Dates: start: 20230313
  2. POLATUZUMAB VEDOTIN [Suspect]
     Active Substance: POLATUZUMAB VEDOTIN
     Indication: B-cell lymphoma
     Dosage: IT WAS HIS MOST RECENT DOSE TOO.?ON 03/APR/2023, MOST RECENT DOSE OF POLATUZUMAB VEDOTIN (110 MG) WA
     Route: 042
     Dates: start: 20230313
  3. ALLOPURINOL [Concomitant]
     Active Substance: ALLOPURINOL
     Indication: Tumour lysis syndrome
     Route: 048
     Dates: start: 20230217, end: 20230313
  4. ALLOPURINOL [Concomitant]
     Active Substance: ALLOPURINOL
     Route: 048
     Dates: start: 20230313, end: 20230322
  5. ALLOPURINOL [Concomitant]
     Active Substance: ALLOPURINOL
     Route: 048
     Dates: start: 20230323, end: 20230412
  6. TRAMADOL [Concomitant]
     Active Substance: TRAMADOL
     Indication: Pain prophylaxis
     Route: 048
     Dates: start: 20230217, end: 20230412
  7. APIXABAN [Concomitant]
     Active Substance: APIXABAN
     Indication: Prophylaxis
     Route: 048
     Dates: start: 20230306, end: 20230316
  8. OMEPRAZOLE [Concomitant]
     Active Substance: OMEPRAZOLE
     Indication: Abdominal pain upper
     Route: 048
     Dates: start: 20230217, end: 20230412
  9. WATER [Concomitant]
     Active Substance: WATER
     Route: 048
     Dates: start: 20230310, end: 20230412
  10. FUROSEMIDE [Concomitant]
     Active Substance: FUROSEMIDE
     Route: 042
     Dates: start: 20230314, end: 20230316
  11. FUROSEMIDE [Concomitant]
     Active Substance: FUROSEMIDE
     Route: 042
     Dates: start: 20230415, end: 20230418
  12. ERTAPENEM [Concomitant]
     Active Substance: ERTAPENEM
     Indication: Urinary tract infection
     Route: 042
     Dates: start: 20230317, end: 20230323
  13. AMOXICILLIN [Concomitant]
     Active Substance: AMOXICILLIN
     Indication: Urinary tract infection
     Route: 048
     Dates: start: 20230318, end: 20230324
  14. ONDANSETRON [Concomitant]
     Active Substance: ONDANSETRON
     Indication: Nausea
     Route: 048
     Dates: start: 20230325, end: 20230412
  15. LOPERAMIDE [Concomitant]
     Active Substance: LOPERAMIDE
     Indication: Diarrhoea
     Route: 048
     Dates: start: 20230326, end: 20230328
  16. PHOSPHORUS [Concomitant]
     Active Substance: PHOSPHORUS
     Indication: Hypophosphataemia
     Route: 048
     Dates: start: 20230311, end: 20230312
  17. LACTULOSE [Concomitant]
     Active Substance: LACTULOSE
     Indication: Constipation
     Route: 048
     Dates: start: 20230407, end: 20230407
  18. ACETAMINOPHEN [Concomitant]
     Active Substance: ACETAMINOPHEN
     Indication: Premedication
     Route: 042
     Dates: start: 20230313, end: 20230403
  19. ACETAMINOPHEN [Concomitant]
     Active Substance: ACETAMINOPHEN
     Route: 042
     Dates: start: 20230413, end: 20230418
  20. DIPHENHYDRAMINE [Concomitant]
     Active Substance: DIPHENHYDRAMINE
     Indication: Premedication
     Route: 042
     Dates: start: 20230313, end: 20230403
  21. DEXAMETHASONE [Concomitant]
     Active Substance: DEXAMETHASONE
     Indication: Premedication
     Route: 042
     Dates: start: 20230313, end: 20230403
  22. GANCICLOVIR [Concomitant]
     Active Substance: GANCICLOVIR
     Indication: Cytomegalovirus infection reactivation
     Route: 042
     Dates: start: 20230414

REACTIONS (5)
  - CD4 lymphocytes decreased [Not Recovered/Not Resolved]
  - Platelet count decreased [Not Recovered/Not Resolved]
  - Hyponatraemia [Recovered/Resolved]
  - Cytomegalovirus infection reactivation [Fatal]
  - Tumour lysis syndrome [Recovered/Resolved]

NARRATIVE: CASE EVENT DATE: 20230313
